FAERS Safety Report 5709785-5 (Version None)
Quarter: 2008Q2

REPORT INFORMATION
  Report Type: 
  Country: None (occurrence: None)
  Receive Date: 20080418
  Receipt Date: 20080414
  Transmission Date: 20081010
  Serious: Yes (Other)
  Sender: FDA-Public Use
  Company Number: DE-JNJFOC-20080403434

PATIENT
  Age: 29 Year
  Sex: Female

DRUGS (4)
  1. RISPERDAL [Suspect]
     Indication: DRUG USE FOR UNKNOWN INDICATION
     Route: 048
  2. SEROQUEL [Interacting]
     Indication: DRUG USE FOR UNKNOWN INDICATION
     Route: 048
  3. PAROXETINE HCL [Interacting]
     Indication: DRUG USE FOR UNKNOWN INDICATION
     Route: 048
  4. REMERGIL [Interacting]
     Indication: DRUG USE FOR UNKNOWN INDICATION
     Route: 048

REACTIONS (2)
  - DRUG INTERACTION [None]
  - RESTLESSNESS [None]
